FAERS Safety Report 10208835 (Version 2)
Quarter: 2014Q2

REPORT INFORMATION
  Report Type: Spontaneous
  Country: US (occurrence: US)
  Receive Date: 20140530
  Receipt Date: 20140530
  Transmission Date: 20141212
  Serious: No
  Sender: FDA-Public Use
  Company Number: US-009507513-1401USA013522

PATIENT
  Sex: Female

DRUGS (2)
  1. MIRALAX [Suspect]
     Indication: CONSTIPATION
     Dosage: QD
     Route: 048
     Dates: start: 2013
  2. MIRALAX [Suspect]
     Dosage: 17 G, QD
     Route: 048

REACTIONS (3)
  - Nausea [Not Recovered/Not Resolved]
  - Incorrect drug administration duration [Unknown]
  - Underdose [Unknown]
